FAERS Safety Report 12791125 (Version 1)
Quarter: 2016Q3

REPORT INFORMATION
  Report Type: Spontaneous
  Country: DE (occurrence: DE)
  Receive Date: 20160929
  Receipt Date: 20160929
  Transmission Date: 20161109
  Serious: Yes (Other)
  Sender: FDA-Public Use
  Company Number: DE-DRREDDYS-GER/GER/16/0083643

PATIENT
  Sex: Male
  Weight: 3.74 kg

DRUGS (3)
  1. VOMEX A SUPPOSITORIEN [Suspect]
     Active Substance: DIMENHYDRINATE
     Indication: VOMITING IN PREGNANCY
     Route: 064
  2. VENLAFAXINE [Suspect]
     Active Substance: VENLAFAXINE HYDROCHLORIDE
     Indication: DEPRESSION
     Dosage: 150 MG/D/ REDUCTION IN LAST TRIMESTER TO 75 MG/D
     Route: 064
     Dates: start: 20150913, end: 20160606
  3. FEMIBION [Concomitant]
     Active Substance: VITAMINS
     Indication: VITAMIN SUPPLEMENTATION
     Route: 064
     Dates: start: 20151201, end: 20160606

REACTIONS (2)
  - Pyloric stenosis [Recovered/Resolved with Sequelae]
  - Foetal exposure during pregnancy [Recovered/Resolved]
